FAERS Safety Report 11781884 (Version 1)
Quarter: 2015Q4

REPORT INFORMATION
  Report Type: Spontaneous
  Country: US (occurrence: US)
  Receive Date: 20151126
  Receipt Date: 20151126
  Transmission Date: 20160305
  Serious: Yes (Death, Life-Threatening, Other)
  Sender: FDA-Public Use
  Company Number: US-PFIZER INC-9946452

PATIENT
  Age: 57 Year
  Sex: Male

DRUGS (12)
  1. FENTANYL CITRATE. [Suspect]
     Active Substance: FENTANYL CITRATE
     Indication: PAIN
     Dosage: 72 MCG/HR
     Route: 062
     Dates: start: 19960610, end: 19960610
  2. VISTARIL [Suspect]
     Active Substance: HYDROXYZINE PAMOATE
     Indication: PAIN
     Dosage: UNK
     Route: 041
     Dates: start: 19960609, end: 19960610
  3. ELAVIL [Suspect]
     Active Substance: AMITRIPTYLINE HYDROCHLORIDE
     Indication: PAIN
     Dosage: 10 MG, SINGLE
     Route: 048
     Dates: start: 19960610
  4. DEMEROL [Suspect]
     Active Substance: MEPERIDINE HYDROCHLORIDE
     Indication: PAIN
     Dosage: UNK
     Dates: start: 19960605, end: 19960610
  5. RESTORIL [Suspect]
     Active Substance: TEMAZEPAM
     Indication: SLEEP DISORDER
  6. MORPHINE SULFATE. [Suspect]
     Active Substance: MORPHINE SULFATE
     Indication: PAIN
     Dosage: UNK
     Route: 042
     Dates: start: 19960604, end: 19960605
  7. ALBUTEROL. [Concomitant]
     Active Substance: ALBUTEROL
     Dosage: 0.5 CC IN NORMAL SALINE
     Route: 055
     Dates: start: 19960606, end: 19960610
  8. XANAX [Suspect]
     Active Substance: ALPRAZOLAM
     Indication: PAIN
     Dosage: 0.5 MG, AS NEEDED
     Route: 048
     Dates: start: 19960610
  9. DILAUDID [Suspect]
     Active Substance: HYDROMORPHONE HYDROCHLORIDE
     Dosage: 1 MG/HR
  10. DILAUDID [Suspect]
     Active Substance: HYDROMORPHONE HYDROCHLORIDE
     Indication: CHEST PAIN
     Dosage: 1 MG/HR
     Route: 041
     Dates: start: 19960610
  11. RESTORIL [Suspect]
     Active Substance: TEMAZEPAM
     Indication: PAIN
     Dosage: UNK
     Dates: start: 19960609
  12. DILAUDID [Suspect]
     Active Substance: HYDROMORPHONE HYDROCHLORIDE
     Dosage: 2 MG/HR
     Dates: start: 19960610

REACTIONS (12)
  - Lethargy [Unknown]
  - Hypotension [Unknown]
  - Emphysema [Unknown]
  - Pneumonia [Unknown]
  - Cardiopulmonary failure [Fatal]
  - Chest pain [Unknown]
  - Coma [Unknown]
  - Drug abuse [Unknown]
  - Aspiration [Unknown]
  - Circulatory collapse [Fatal]
  - Stupor [Unknown]
  - Breath sounds abnormal [Unknown]

NARRATIVE: CASE EVENT DATE: 19960610
